FAERS Safety Report 13939020 (Version 1)
Quarter: 2017Q3

REPORT INFORMATION
  Report Type: Spontaneous
  Country: US (occurrence: None)
  Receive Date: 20170906
  Receipt Date: 20170906
  Transmission Date: 20171127
  Serious: Yes (Hospitalization)
  Sender: FDA-Public Use
  Company Number: None

PATIENT
  Age: 74 Year
  Sex: Female

DRUGS (16)
  1. AMLODIPINE [Concomitant]
     Active Substance: AMLODIPINE BESYLATE
  2. SUTENT [Concomitant]
     Active Substance: SUNITINIB MALATE
  3. RANITIDINE. [Concomitant]
     Active Substance: RANITIDINE
  4. SUTENT [Suspect]
     Active Substance: SUNITINIB MALATE
     Indication: GASTRIC CANCER
     Route: 048
     Dates: start: 20160126
  5. CENTRUM SILVER [Concomitant]
     Active Substance: MINERALS\VITAMINS
  6. OMEPRAZOLE. [Concomitant]
     Active Substance: OMEPRAZOLE
  7. TRIAM/HCTZ [Concomitant]
  8. SMZ/TMP DS [Concomitant]
     Active Substance: SULFAMETHOXAZOLE\TRIMETHOPRIM
  9. PEG 3350 [Concomitant]
     Active Substance: POLYETHYLENE GLYCOL 3350
  10. DOK [Concomitant]
     Active Substance: DOCUSATE SODIUM
  11. GLYCOPYRROL [Concomitant]
  12. IMODIUM A-D [Concomitant]
     Active Substance: LOPERAMIDE HYDROCHLORIDE
  13. TYLENOL 8HR [Concomitant]
     Active Substance: ACETAMINOPHEN
  14. NAPROXEN. [Concomitant]
     Active Substance: NAPROXEN
  15. ALEVE [Concomitant]
     Active Substance: NAPROXEN SODIUM
  16. METOCLOPRAM [Concomitant]
     Active Substance: METOCLOPRAMIDE

REACTIONS (1)
  - Haemorrhage [None]

NARRATIVE: CASE EVENT DATE: 201706
